FAERS Safety Report 13010333 (Version 1)
Quarter: 2016Q4

REPORT INFORMATION
  Report Type: Spontaneous
  Country: US (occurrence: US)
  Receive Date: 20161207
  Receipt Date: 20161207
  Transmission Date: 20170207
  Serious: No
  Sender: FDA-Public Use
  Company Number: None

PATIENT
  Age: 33 Year
  Sex: Female
  Weight: 60.3 kg

DRUGS (5)
  1. CALCITRIOL. [Concomitant]
     Active Substance: CALCITRIOL
  2. LATANPROST 0.5% OPHTHSOLN [Concomitant]
  3. BRIMONIDINE TARTRATE OPHTHALMIC AKORN, INC. [Suspect]
     Active Substance: BRIMONIDINE TARTRATE
     Indication: INTRAOCULAR PRESSURE INCREASED
     Dosage: ?          QUANTITY:1 DROP(S);?
     Route: 047
     Dates: start: 20161201, end: 20161206
  4. LOSARTIN [Suspect]
     Active Substance: LOSARTAN
  5. TYLENOL [Concomitant]
     Active Substance: ACETAMINOPHEN

REACTIONS (9)
  - Heart rate increased [None]
  - Nausea [None]
  - Tinnitus [None]
  - Dizziness [None]
  - Feeling hot [None]
  - Headache [None]
  - Fatigue [None]
  - Muscular weakness [None]
  - Cold sweat [None]

NARRATIVE: CASE EVENT DATE: 20161201
